FAERS Safety Report 18970554 (Version 1)
Quarter: 2021Q1

REPORT INFORMATION
  Report Type: Spontaneous
  Country: US (occurrence: US)
  Receive Date: 20210305
  Receipt Date: 20210305
  Transmission Date: 20210420
  Serious: Yes (Hospitalization)
  Sender: FDA-Public Use
  Company Number: US-TEVA-2021-US-1885343

PATIENT
  Age: 55 Year
  Sex: Female

DRUGS (3)
  1. METHOTREXATE. [Suspect]
     Active Substance: METHOTREXATE
     Indication: SYSTEMIC LUPUS ERYTHEMATOSUS
     Dosage: MONOTHERAPY; INITIAL DOSE NOT STATED
     Route: 065
  2. METHOTREXATE. [Suspect]
     Active Substance: METHOTREXATE
     Dosage: ALONG WITH BELIMUMAB; METHOTREXATE THERAPY ADMINISTERED FOR OVER 10 YEARS 15 MG ONCE IN A WEEK
     Route: 065
  3. BELIMUMAB [Suspect]
     Active Substance: BELIMUMAB
     Indication: SYSTEMIC LUPUS ERYTHEMATOSUS
     Dosage: THERAPY HAD BEEN ADMINISTERED FOR APPROXIMATELY 2 AND HALF YEARS AT THE TIME OF PRESENTATION.
     Route: 041

REACTIONS (3)
  - Cytomegalovirus infection reactivation [Unknown]
  - Cytomegalovirus enteritis [Unknown]
  - Cytomegalovirus hepatitis [Unknown]
